FAERS Safety Report 8901749 (Version 1)
Quarter: 2012Q4

REPORT INFORMATION
  Report Type: Spontaneous
  Country: US (occurrence: None)
  Receive Date: 20121105
  Receipt Date: 20121105
  Transmission Date: 20130627
  Serious: Yes (Hospitalization, Other)
  Sender: FDA-Public Use
  Company Number: 1468125

PATIENT
  Sex: Female

DRUGS (2)
  1. LIDOCAINE HCL [Suspect]
     Indication: MEDICATION DILUTION
     Dates: start: 20121022, end: 20121022
  2. CEFTRIAXONE [Suspect]
     Indication: DRUG USE FOR UNKNOWN INDICATION
     Dates: start: 20121022, end: 20121022

REACTIONS (3)
  - Dyspnoea [None]
  - Chest pain [None]
  - Blood pressure decreased [None]
